FAERS Safety Report 18368930 (Version 4)
Quarter: 2021Q1

REPORT INFORMATION
  Report Type: Spontaneous
  Country: US (occurrence: US)
  Receive Date: 20201011
  Receipt Date: 20210324
  Transmission Date: 20210419
  Serious: Yes (Other)
  Sender: FDA-Public Use
  Company Number: US-GLAXOSMITHKLINE-US2020AMR201293

PATIENT
  Sex: Female

DRUGS (2)
  1. ZEJULA [Suspect]
     Active Substance: NIRAPARIB
     Dosage: 200 MG, QD
     Route: 048
     Dates: start: 20171111
  2. ZEJULA [Suspect]
     Active Substance: NIRAPARIB
     Indication: OVARIAN CANCER
     Dosage: 200 MG, QD
     Route: 048
     Dates: start: 20170103

REACTIONS (6)
  - Blood pressure increased [Unknown]
  - Weight increased [Unknown]
  - Precancerous skin lesion [Unknown]
  - Electrocardiogram abnormal [Unknown]
  - Hyperhidrosis [Not Recovered/Not Resolved]
  - Palpitations [Unknown]
